FAERS Safety Report 17514910 (Version 2)
Quarter: 2020Q4

REPORT INFORMATION
  Report Type: Spontaneous
  Country: BE (occurrence: BE)
  Receive Date: 20200309
  Receipt Date: 20201208
  Transmission Date: 20210113
  Serious: Yes (Hospitalization, Other)
  Sender: FDA-Public Use
  Company Number: BE-SA-2020SA050515

PATIENT

DRUGS (8)
  1. PRAVASTATIN. [Concomitant]
     Active Substance: PRAVASTATIN
     Indication: CORONARY ARTERY DISSECTION
  2. TACROLIMUS. [Concomitant]
     Active Substance: TACROLIMUS
     Indication: TRANSPLANT REJECTION
  3. CLOPIDOGREL BISULFATE. [Suspect]
     Active Substance: CLOPIDOGREL BISULFATE
     Indication: CORONARY ARTERY DISSECTION
  4. ACETYLSALICYLIC ACID [Concomitant]
     Active Substance: ASPIRIN
     Indication: ANTIPLATELET THERAPY
  5. ACETYLSALICYLIC ACID [Concomitant]
     Active Substance: ASPIRIN
     Indication: CORONARY ARTERY DISSECTION
  6. CLOPIDOGREL BISULFATE. [Suspect]
     Active Substance: CLOPIDOGREL BISULFATE
     Indication: ANTIPLATELET THERAPY
     Dosage: UNK
  7. BISOPROLOL [Concomitant]
     Active Substance: BISOPROLOL
     Indication: CORONARY ARTERY DISSECTION
     Dosage: LOW DOSE
  8. MYCOPHENOLATE MOFETIL. [Concomitant]
     Active Substance: MYCOPHENOLATE MOFETIL
     Indication: TRANSPLANT REJECTION

REACTIONS (5)
  - Ventricular hypokinesia [Recovered/Resolved]
  - Ventricular tachycardia [Recovered/Resolved]
  - Left ventricular dysfunction [Recovered/Resolved]
  - Coronary artery dissection [Recovered/Resolved]
  - Condition aggravated [Recovered/Resolved]
